FAERS Safety Report 9294975 (Version 1)
Quarter: 2013Q2

REPORT INFORMATION
  Report Type: Spontaneous
  Country: US (occurrence: None)
  Receive Date: 20130516
  Receipt Date: 20130516
  Transmission Date: 20140414
  Serious: Yes (Other)
  Sender: FDA-Public Use
  Company Number: None

PATIENT
  Age: 47 Year
  Sex: Male
  Weight: 102.06 kg

DRUGS (1)
  1. ZANAFLEX -TIZANIDINE- 4 MG. ACCORDA THERAPEUTICS [Suspect]
     Indication: MUSCLE SPASMS

REACTIONS (4)
  - Disorientation [None]
  - Abasia [None]
  - Aphasia [None]
  - Muscle spasms [None]
